FAERS Safety Report 8142110-1 (Version None)
Quarter: 2012Q1

REPORT INFORMATION
  Report Type: 
  Country: None (occurrence: None)
  Receive Date: 20120216
  Receipt Date: 20120209
  Transmission Date: 20120608
  Serious: Yes (Hospitalization)
  Sender: FDA-Public Use
  Company Number: US-MEDIMMUNE-MEDI-0014833

PATIENT
  Sex: Female
  Weight: 3.178 kg

DRUGS (2)
  1. SYNAGIS [Suspect]
     Dates: start: 20120120
  2. IRON [Concomitant]

REACTIONS (1)
  - TONGUE DISCOLOURATION [None]
